FAERS Safety Report 8561915-6 (Version None)
Quarter: 2012Q3

REPORT INFORMATION
  Report Type: 
  Country: None (occurrence: None)
  Receive Date: 20120802
  Receipt Date: 20120706
  Transmission Date: 20120928
  Serious: No
  Sender: FDA-Public Use
  Company Number: US-AMGEN-USASP2012003328

PATIENT
  Age: 59 Year
  Sex: Female

DRUGS (2)
  1. ENBREL [Suspect]
     Indication: PSORIATIC ARTHROPATHY
  2. ENBREL [Suspect]
     Indication: PSORIASIS
     Dosage: 50 MG, QWK
     Dates: start: 20110310

REACTIONS (7)
  - HEADACHE [None]
  - GASTRITIS EROSIVE [None]
  - NASAL DRYNESS [None]
  - URINARY TRACT INFECTION [None]
  - FATIGUE [None]
  - DRY EYE [None]
  - PSORIATIC ARTHROPATHY [None]
